FAERS Safety Report 8145564 (Version 4)
Quarter: 2012Q4

REPORT INFORMATION
  Report Type: Report from Study
  Country: US (occurrence: None)
  Receive Date: 20110908
  Receipt Date: 20120911
  Transmission Date: 20130627
  Serious: Yes (Other)
  Sender: FDA-Public Use
  Company Number: US-2011-10613

PATIENT
  Age: 28 Year
  Sex: Female

DRUGS (8)
  1. BUSULFAN [Suspect]
     Indication: STEM CELL TRANSPLANT
     Dosage: 47 MG MILLIGRAM(S), DAILY DOSE    236 MG MILLIGRAM(S), DAILY DOSE
     Route: 042
     Dates: start: 20110509, end: 20110509
  2. BUSULFAN [Suspect]
     Indication: STEM CELL TRANSPLANT
     Dosage: 47 MG MILLIGRAM(S), DAILY DOSE    236 MG MILLIGRAM(S), DAILY DOSE
  3. ETOPOSIDE [Concomitant]
  4. CYCLOPHOSPHAMIDE [Concomitant]
  5. ACYCLOVIR [Concomitant]
  6. ZOFRAN [Concomitant]
  7. ATIVAN [Concomitant]
  8. AMBIEN [Concomitant]

REACTIONS (4)
  - OBSTRUCTIVE AIRWAYS DISORDER [None]
  - RESTRICTIVE PULMONARY DISEASE [None]
  - TOXICITY TO VARIOUS AGENTS [None]
  - ANAEMIA [None]
